FAERS Safety Report 9959619 (Version 1)
Quarter: 2014Q1

REPORT INFORMATION
  Report Type: Report from Study
  Country: US (occurrence: US)
  Receive Date: 20140305
  Receipt Date: 20140305
  Transmission Date: 20141002
  Serious: No
  Sender: FDA-Public Use
  Company Number: US-ABBVIE-13P-163-1102994-00

PATIENT
  Sex: Female
  Weight: 86.26 kg

DRUGS (5)
  1. HUMIRA [Suspect]
     Indication: COLITIS ULCERATIVE
     Route: 058
     Dates: start: 200903, end: 200903
  2. HUMIRA [Suspect]
     Route: 058
     Dates: start: 200903, end: 200903
  3. HUMIRA [Suspect]
     Route: 058
     Dates: start: 200904
  4. LORTAB [Concomitant]
     Indication: COLITIS ULCERATIVE
  5. SEROQUEL [Concomitant]
     Indication: DEPRESSION

REACTIONS (3)
  - Hyperhidrosis [Not Recovered/Not Resolved]
  - Feeling abnormal [Not Recovered/Not Resolved]
  - Anxiety [Not Recovered/Not Resolved]
